FAERS Safety Report 4338089-0 (Version None)
Quarter: 2004Q2

REPORT INFORMATION
  Report Type: 
  Country: None (occurrence: None)
  Receive Date: 20040413
  Receipt Date: 20040413
  Transmission Date: 20050107
  Serious: Yes (Other)
  Sender: FDA-Public Use
  Company Number: None

PATIENT
  Age: 73 Year
  Sex: Female
  Weight: 53.0709 kg

DRUGS (15)
  1. REMICADE [Suspect]
     Indication: RHEUMATOID ARTHRITIS
     Dosage: 300 MG INTRAVENOUS
     Route: 042
     Dates: start: 20040323, end: 20040323
  2. REMICADE [Suspect]
     Indication: RHEUMATOID ARTHRITIS
     Dosage: 300 MG INTRAVENOUS
     Route: 042
     Dates: start: 20040406, end: 20040406
  3. PLAVIX [Concomitant]
  4. TOPROL-XL [Concomitant]
  5. ALTACE [Concomitant]
  6. ASACOL [Concomitant]
  7. TRAZODONE HCL [Concomitant]
  8. TIZANIDINE HCL [Concomitant]
  9. MULTI-VITAMIN [Concomitant]
  10. FOLIC ACID [Concomitant]
  11. B6 [Concomitant]
  12. B12 [Concomitant]
  13. BEXTRA [Concomitant]
  14. LOMOTIL [Concomitant]
  15. DILT [Concomitant]

REACTIONS (4)
  - BACK PAIN [None]
  - CHILLS [None]
  - CONDITION AGGRAVATED [None]
  - MUSCLE SPASMS [None]
